FAERS Safety Report 21147788 (Version 1)
Quarter: 2022Q3

REPORT INFORMATION
  Report Type: Spontaneous
  Country: US (occurrence: US)
  Receive Date: 20220729
  Receipt Date: 20220729
  Transmission Date: 20221026
  Serious: Yes (Other)
  Sender: FDA-Public Use
  Company Number: US-PFIZER INC-202201008608

PATIENT

DRUGS (1)
  1. LORLATINIB [Suspect]
     Active Substance: LORLATINIB
     Indication: Small cell lung cancer
     Dosage: UNK

REACTIONS (7)
  - Renal failure [Unknown]
  - Diabetes mellitus [Unknown]
  - Blood cholesterol increased [Unknown]
  - Hypertension [Unknown]
  - Blood creatinine abnormal [Unknown]
  - Glomerular filtration rate decreased [Unknown]
  - Off label use [Unknown]
